FAERS Safety Report 6558689-7 (Version None)
Quarter: 2010Q1

REPORT INFORMATION
  Report Type: 
  Country: None (occurrence: None)
  Receive Date: 20100128
  Receipt Date: 20100128
  Transmission Date: 20100710
  Serious: Yes (Other)
  Sender: FDA-Public Use
  Company Number: None

PATIENT
  Sex: Male
  Weight: 39.2 kg

DRUGS (1)
  1. SUCCIMER 100 MG SANOFI AVENTIS LLC [Suspect]
     Indication: METAL POISONING
     Dosage: 400 MG TWICE DAILY ORAL
     Route: 048
     Dates: start: 20100104, end: 20100119

REACTIONS (1)
  - GRAND MAL CONVULSION [None]
